FAERS Safety Report 4981998-X (Version None)
Quarter: 2006Q2

REPORT INFORMATION
  Report Type: 
  Country: None (occurrence: None)
  Receive Date: 20060425
  Receipt Date: 20060419
  Transmission Date: 20061013
  Serious: Yes (Death, Other)
  Sender: FDA-Public Use
  Company Number: LB-MERCK-0604USA03187

PATIENT
  Age: 58 Year
  Sex: Male

DRUGS (2)
  1. ZOCOR [Suspect]
     Indication: CORONARY ARTERY DISEASE
     Route: 048
     Dates: start: 20060328, end: 20060328
  2. [THERAPY UNSPECIFIED] [Concomitant]
     Route: 065

REACTIONS (3)
  - CARDIAC ARREST [None]
  - CARDIOGENIC SHOCK [None]
  - MYOCARDIAL INFARCTION [None]
